FAERS Safety Report 10753977 (Version 2)
Quarter: 2018Q1

REPORT INFORMATION
  Report Type: Spontaneous
  Country: CA (occurrence: CA)
  Receive Date: 20150202
  Receipt Date: 20180219
  Transmission Date: 20180508
  Serious: Yes (Disabling)
  Sender: FDA-Public Use
  Company Number: CA-009507513-1501CAN011619

PATIENT
  Age: 66 Year
  Sex: Female

DRUGS (5)
  1. ORACORT [Concomitant]
     Active Substance: TRIAMCINOLONE ACETONIDE
     Dosage: APPL. BID IN MOUTH
     Route: 065
     Dates: start: 20140626
  2. XYLOCAINE [Concomitant]
     Active Substance: LIDOCAINE HYDROCHLORIDE
     Dosage: APPLY BID PRN IN MOUTH
     Route: 065
     Dates: start: 20140804
  3. EZETROL [Suspect]
     Active Substance: EZETIMIBE
     Indication: DYSLIPIDAEMIA
     Dosage: 10 MG, 1 EVERY 1 DAY(S)
     Route: 048
     Dates: start: 20140731, end: 20140930
  4. LOPROX [Concomitant]
     Active Substance: CICLOPIROX\CICLOPIROX OLAMINE
     Dosage: APPLY ON TONGUE PRN
     Route: 065
     Dates: start: 20140804
  5. VENTOLIN HFA [Concomitant]
     Active Substance: ALBUTEROL SULFATE
     Dosage: 100 MG 2 INH QID PRN + HAS BEEN TAKING IT FOR A WHILE
     Route: 065
     Dates: start: 20140724

REACTIONS (4)
  - Abdominal pain [Recovered/Resolved]
  - Nausea [Recovered/Resolved]
  - Abdominal distension [Recovered/Resolved]
  - Gastritis [Recovered/Resolved]

NARRATIVE: CASE EVENT DATE: 20140911
